FAERS Safety Report 10506732 (Version 8)
Quarter: 2015Q2

REPORT INFORMATION
  Report Type: Report from Study
  Country: CA (occurrence: CA)
  Receive Date: 20141009
  Receipt Date: 20150515
  Transmission Date: 20150821
  Serious: Yes (Other)
  Sender: FDA-Public Use
  Company Number: CA-ROCHE-1150221

PATIENT
  Age: 65 Year
  Sex: Female
  Weight: 68 kg

DRUGS (13)
  1. DEXAMETH [Concomitant]
     Active Substance: DEXAMETHASONE
  2. ARAVA [Concomitant]
     Active Substance: LEFLUNOMIDE
  3. ACETAMINOPHEN. [Concomitant]
     Active Substance: ACETAMINOPHEN
     Route: 048
     Dates: start: 20111011, end: 20140128
  4. PREDNISONE. [Concomitant]
     Active Substance: PREDNISONE
  5. METHYLPREDNISOLONE. [Concomitant]
     Active Substance: METHYLPREDNISOLONE
     Route: 042
     Dates: start: 20111011, end: 20140128
  6. OMEGA 3 [Concomitant]
     Active Substance: OMEGA-3 FATTY ACIDS
  7. ACTEMRA [Suspect]
     Active Substance: TOCILIZUMAB
     Indication: RHEUMATOID ARTHRITIS
     Route: 042
     Dates: start: 20140708
  8. ELTROXIN [Concomitant]
     Active Substance: LEVOTHYROXINE
  9. IMOVANE [Concomitant]
     Active Substance: ZOPICLONE
  10. DIPHENHYDRAMINE HCL [Concomitant]
     Active Substance: DIPHENHYDRAMINE HYDROCHLORIDE
     Route: 048
     Dates: start: 20111011, end: 20140128
  11. RITUXAN [Suspect]
     Active Substance: RITUXIMAB
     Indication: RHEUMATOID ARTHRITIS
     Route: 042
     Dates: start: 20121011, end: 20140128
  12. CELEBREX [Concomitant]
     Active Substance: CELECOXIB
  13. OMEPRAZOLE. [Concomitant]
     Active Substance: OMEPRAZOLE

REACTIONS (9)
  - Chills [Recovered/Resolved]
  - Arthropathy [Recovered/Resolved]
  - Burning sensation [Recovered/Resolved]
  - Ill-defined disorder [Unknown]
  - Skin ulcer [Not Recovered/Not Resolved]
  - Infusion related reaction [Unknown]
  - Hot flush [Recovered/Resolved]
  - Weight decreased [Not Recovered/Not Resolved]
  - Pyrexia [Recovered/Resolved]

NARRATIVE: CASE EVENT DATE: 20121022
